FAERS Safety Report 8850882 (Version 2)
Quarter: 2013Q2

REPORT INFORMATION
  Report Type: Spontaneous
  Country: US (occurrence: US)
  Receive Date: 20121019
  Receipt Date: 20130404
  Transmission Date: 20140414
  Serious: No
  Sender: FDA-Public Use
  Company Number: US-BAYER-2012-108593

PATIENT
  Age: 54 Year
  Sex: Female

DRUGS (2)
  1. MENOSTAR [Suspect]
     Indication: HOT FLUSH
     Dosage: UNK
     Route: 062
     Dates: start: 201206
  2. MENOSTAR [Suspect]
     Indication: BONE DENSITY ABNORMAL

REACTIONS (8)
  - Headache [Not Recovered/Not Resolved]
  - Poor quality sleep [Not Recovered/Not Resolved]
  - Hot flush [Not Recovered/Not Resolved]
  - Mood swings [Not Recovered/Not Resolved]
  - Alopecia [Not Recovered/Not Resolved]
  - Product adhesion issue [None]
  - Headache [None]
  - Product adhesion issue [None]
